FAERS Safety Report 6604451-6 (Version None)
Quarter: 2010Q1

REPORT INFORMATION
  Report Type: 
  Country: None (occurrence: None)
  Receive Date: 20100226
  Receipt Date: 20091015
  Transmission Date: 20100710
  Serious: No
  Sender: FDA-Public Use
  Company Number: A0811982A

PATIENT
  Sex: Female

DRUGS (5)
  1. LAMICTAL CD [Suspect]
     Indication: EPILEPSY
     Route: 048
     Dates: start: 20091001
  2. VITAMINS [Concomitant]
  3. FOLIC ACID [Concomitant]
  4. CALCIUM [Concomitant]
  5. DILANTIN [Concomitant]

REACTIONS (2)
  - HEADACHE [None]
  - NAUSEA [None]
